FAERS Safety Report 5271487-X (Version None)
Quarter: 2007Q1

REPORT INFORMATION
  Report Type: 
  Country: None (occurrence: None)
  Receive Date: 20061214
  Receipt Date: 20060803
  Transmission Date: 20070707
  Serious: Yes (Other)
  Sender: FDA-Public Use
  Company Number: 2006097004

PATIENT
  Age: 42 Year
  Sex: Male
  Weight: 108.8633 kg

DRUGS (2)
  1. BEXTRA [Suspect]
     Indication: ARTHRALGIA
     Dosage: 40 MG (20 MG, 2 IN 1 D)
     Dates: start: 20000101, end: 20030101
  2. ASPIRIN [Concomitant]

REACTIONS (2)
  - HEPATOCELLULAR DAMAGE [None]
  - MYOCARDIAL INFARCTION [None]
